FAERS Safety Report 6932581-8 (Version None)
Quarter: 2010Q3

REPORT INFORMATION
  Report Type: 
  Country: None (occurrence: None)
  Receive Date: 20100819
  Receipt Date: 20100812
  Transmission Date: 20110219
  Serious: Yes (Other)
  Sender: FDA-Public Use
  Company Number: DE-AMGEN-KDL430793

PATIENT
  Age: 47 Year
  Sex: Female

DRUGS (2)
  1. NPLATE [Suspect]
     Indication: IDIOPATHIC THROMBOCYTOPENIC PURPURA
     Dates: start: 20090710, end: 20100301
  2. CORTISONE ACETATE [Concomitant]
     Route: 065

REACTIONS (2)
  - ARTHRALGIA [None]
  - BONE PAIN [None]
